FAERS Safety Report 7830729-4 (Version None)
Quarter: 2011Q4

REPORT INFORMATION
  Report Type: 
  Country: None (occurrence: None)
  Receive Date: 20111021
  Receipt Date: 20111020
  Transmission Date: 20120403
  Serious: Yes (Other)
  Sender: FDA-Public Use
  Company Number: AU-ABBOTT-11P-008-0866652-00

PATIENT
  Sex: Female

DRUGS (5)
  1. PERINDO [Suspect]
     Indication: HYPERTENSION
     Route: 048
     Dates: start: 20110807
  2. ASCORBIC ACID [Concomitant]
     Indication: PRODUCT USED FOR UNKNOWN INDICATION
  3. FISH OIL [Concomitant]
     Indication: PRODUCT USED FOR UNKNOWN INDICATION
  4. PERINDOPRIL ERBUMINE [Suspect]
     Route: 048
     Dates: start: 20110801, end: 20110801
  5. PERINDOPRIL ERBUMINE [Suspect]
     Indication: HYPERTENSION
     Route: 048
     Dates: start: 20070101, end: 20110806

REACTIONS (4)
  - RASH GENERALISED [None]
  - DYSPNOEA [None]
  - LOCAL SWELLING [None]
  - LIP SWELLING [None]
